FAERS Safety Report 19092594 (Version 1)
Quarter: 2021Q2

REPORT INFORMATION
  Report Type: Spontaneous
  Country: CN (occurrence: CN)
  Receive Date: 20210405
  Receipt Date: 20210405
  Transmission Date: 20210717
  Serious: Yes (Other)
  Sender: FDA-Public Use
  Company Number: CN-BAXTER-2021BAX006252

PATIENT
  Age: 5 Year
  Sex: Male
  Weight: 17.5 kg

DRUGS (5)
  1. CYTOSAR [Suspect]
     Active Substance: CYTARABINE
     Indication: ACUTE LYMPHOCYTIC LEUKAEMIA
     Dosage: CYTARABINE POWDER FOR INJECTION 0.029 G + 0.9% SODIUM CHLORIDE INJECTION 1ML?CAM CHEMOTHERAPY
     Route: 058
     Dates: start: 20210219, end: 20210222
  2. ENDOXAN [Suspect]
     Active Substance: CYCLOPHOSPHAMIDE
     Indication: ACUTE LYMPHOCYTIC LEUKAEMIA
     Dosage: CYCLOPHOSPHAMIDE 0.77G + (4:1) GLUCOSE AND SODIUM CHLORIDE INJECTION 250ML?CAM CHEMOTHERAPY
     Route: 041
     Dates: start: 20210219, end: 20210219
  3. 5% GLUCOSE AND 0.9% SODIUM CHLORIDE INJECTION [Suspect]
     Active Substance: DEXTROSE\SODIUM CHLORIDE
     Indication: MEDICATION DILUTION
     Dosage: CYCLOPHOSPHAMIDE 0.77G + (4:1) GLUCOSE AND SODIUM CHLORIDE INJECTION 250ML?CAM CHEMOTHERAPY
     Route: 041
     Dates: start: 20210219, end: 20210219
  4. 0.9% SODIUM CHLORIDE INJECTION [Suspect]
     Active Substance: SODIUM CHLORIDE
     Indication: MEDICATION DILUTION
     Dosage: CYTARABINE POWDER FOR INJECTION 0.029 G + 0.9% SODIUM CHLORIDE INJECTION 1ML?CAM CHEMOTHERAPY
     Route: 058
     Dates: start: 20210219, end: 20210222
  5. MERCAPTOPURINE. [Suspect]
     Active Substance: MERCAPTOPURINE
     Indication: ACUTE LYMPHOCYTIC LEUKAEMIA
     Dosage: FORM OF ADMIN: TABLETS?CAM CHEMOTHERAPY
     Route: 048
     Dates: start: 20210219, end: 20210304

REACTIONS (1)
  - Myelosuppression [Recovering/Resolving]

NARRATIVE: CASE EVENT DATE: 20210306
